FAERS Safety Report 17193191 (Version 4)
Quarter: 2020Q1

REPORT INFORMATION
  Report Type: Report from Study
  Country: US (occurrence: US)
  Receive Date: 20191223
  Receipt Date: 20200324
  Transmission Date: 20200409
  Serious: Yes (Hospitalization)
  Sender: FDA-Public Use
  Company Number: US-ACTELION-A-US2019-193786

PATIENT
  Sex: Female
  Weight: 52.15 kg

DRUGS (4)
  1. XARELTO [Concomitant]
     Active Substance: RIVAROXABAN
     Dosage: 20 MG, OD
     Dates: start: 201709
  2. OPSUMIT [Suspect]
     Active Substance: MACITENTAN
     Indication: PULMONARY ARTERIAL HYPERTENSION
     Dosage: 10 MG, QD
     Route: 048
     Dates: start: 201812
  3. TOPROL XL [Concomitant]
     Active Substance: METOPROLOL SUCCINATE
     Dosage: 25 MG, OD
     Dates: start: 201709
  4. SILDENAFIL. [Concomitant]
     Active Substance: SILDENAFIL
     Dosage: 20 MG, TID
     Dates: start: 201812

REACTIONS (9)
  - Nasal congestion [Unknown]
  - Insomnia [Unknown]
  - Pruritus [Unknown]
  - Oedema peripheral [Unknown]
  - Atrial fibrillation [Unknown]
  - Nasopharyngitis [Not Recovered/Not Resolved]
  - Flatulence [Not Recovered/Not Resolved]
  - Unevaluable event [Unknown]
  - Abdominal discomfort [Not Recovered/Not Resolved]
